FAERS Safety Report 7036061-3 (Version None)
Quarter: 2010Q4

REPORT INFORMATION
  Report Type: 
  Country: None (occurrence: None)
  Receive Date: 20101007
  Receipt Date: 20101007
  Transmission Date: 20110411
  Serious: Yes (Other)
  Sender: FDA-Public Use
  Company Number: None

PATIENT
  Age: 47 Year
  Sex: Female
  Weight: 99.7913 kg

DRUGS (1)
  1. SIMCOR [Suspect]
     Indication: BLOOD CHOLESTEROL INCREASED
     Dosage: 1 TABLET BEDTIME PO
     Route: 048
     Dates: start: 20091222, end: 20101004

REACTIONS (5)
  - FLUSHING [None]
  - PALPITATIONS [None]
  - PRURITUS [None]
  - SWELLING FACE [None]
  - TINNITUS [None]
